FAERS Safety Report 14076703 (Version 1)
Quarter: 2017Q4

REPORT INFORMATION
  Report Type: Spontaneous
  Country: PL (occurrence: PL)
  Receive Date: 20171011
  Receipt Date: 20171011
  Transmission Date: 20180321
  Serious: Yes (Other)
  Sender: FDA-Public Use
  Company Number: PL-HQ SPECIALTY-PL-2017INT000353

PATIENT
  Age: 48 Year
  Sex: Female

DRUGS (5)
  1. CYCLOPHOSPHAMIDE. [Suspect]
     Active Substance: CYCLOPHOSPHAMIDE
     Indication: OVARIAN CANCER METASTATIC
     Dosage: 750 MG/M2 LASTING 3 HOURS WITH 3 WEEKS BREAK BETWEEN CYCLES
     Route: 042
     Dates: start: 200805, end: 2008
  2. TOPOTECAN [Concomitant]
     Active Substance: TOPOTECAN HYDROCHLORIDE
     Indication: OVARIAN CANCER METASTATIC
     Dosage: 1.5 MG/M2 FOR 5 DAYS EVERY 3 WEEKS
     Dates: start: 2008, end: 2008
  3. CISPLATIN. [Suspect]
     Active Substance: CISPLATIN
     Dosage: 75 MG/M2  LASTING 3 HOURS WITH 3 WEEKS BREAK BETWEEN CYCLES
     Route: 042
     Dates: start: 200805, end: 2008
  4. PACLITAXEL. [Concomitant]
     Active Substance: PACLITAXEL
     Indication: OVARIAN CANCER METASTATIC
     Dosage: 175 MG/M2  LASTING 3 HOURS WITH 3 WEEK BREAK BETWEEN CYCLES
     Route: 042
     Dates: start: 200711, end: 200802
  5. CISPLATIN. [Suspect]
     Active Substance: CISPLATIN
     Indication: OVARIAN CANCER METASTATIC
     Dosage: 75 MG/M2 LASTING 3 HOURS WITH 3 WEEK BREAK BETWEEN CYCLES
     Route: 042
     Dates: start: 200711, end: 200802

REACTIONS (1)
  - Anaphylactic reaction [Unknown]
